FAERS Safety Report 16996263 (Version 5)
Quarter: 2020Q1

REPORT INFORMATION
  Report Type: Report from Study
  Country: US (occurrence: US)
  Receive Date: 20191105
  Receipt Date: 20200304
  Transmission Date: 20200409
  Serious: Yes (Hospitalization)
  Sender: FDA-Public Use
  Company Number: US-ACTELION-A-US2019-197751

PATIENT
  Sex: Female
  Weight: 163.27 kg

DRUGS (5)
  1. OPSUMIT [Suspect]
     Active Substance: MACITENTAN
     Indication: PULMONARY ARTERIAL HYPERTENSION
     Dosage: 10 MG, QD
     Route: 048
  2. OXYGEN. [Concomitant]
     Active Substance: OXYGEN
     Dosage: 4 TO 5 L/M
  3. ADEMPAS [Suspect]
     Active Substance: RIOCIGUAT
     Indication: PRODUCT USED FOR UNKNOWN INDICATION
     Route: 065
  4. SILDENAFIL. [Concomitant]
     Active Substance: SILDENAFIL
  5. WARFARIN [Concomitant]
     Active Substance: WARFARIN

REACTIONS (9)
  - Blood potassium abnormal [Unknown]
  - Hospitalisation [Unknown]
  - Heart rate increased [Unknown]
  - Renal function test abnormal [Unknown]
  - Malaise [Unknown]
  - Dyspnoea [Unknown]
  - Headache [Unknown]
  - International normalised ratio increased [Unknown]
  - Product dose omission [Unknown]
